FAERS Safety Report 8443589-8 (Version None)
Quarter: 2012Q2

REPORT INFORMATION
  Report Type: 
  Country: None (occurrence: None)
  Receive Date: 20120605
  Receipt Date: 20120521
  Transmission Date: 20120825
  Serious: Yes (Hospitalization)
  Sender: FDA-Public Use
  Company Number: ACO_30492_2012

PATIENT
  Age: 57 Year
  Sex: Female

DRUGS (4)
  1. PREDNISOLONE [Concomitant]
  2. SANDIMMUNE [Concomitant]
  3. CITALOPRAM HYDROBROMIDE [Concomitant]
  4. FAMPYRA (DALFAMPRIDINE) TABLET, 10MG [Suspect]
     Indication: MULTIPLE SCLEROSIS
     Dosage: 10 MG, 1X, ORAL
     Route: 048
     Dates: start: 20111202, end: 20111202

REACTIONS (3)
  - TACHYARRHYTHMIA [None]
  - DYSPNOEA [None]
  - DISTURBANCE IN ATTENTION [None]
